FAERS Safety Report 21708011 (Version 3)
Quarter: 2022Q4

REPORT INFORMATION
  Report Type: Spontaneous
  Country: US (occurrence: US)
  Receive Date: 20221209
  Receipt Date: 20221226
  Transmission Date: 20230113
  Serious: No
  Sender: FDA-Public Use
  Company Number: US-BAUSCHBL-2022BNL002482

PATIENT
  Age: 72 Year
  Sex: Female
  Weight: 74.910 kg

DRUGS (5)
  1. OPCON-A [Suspect]
     Active Substance: NAPHAZOLINE HYDROCHLORIDE\PHENIRAMINE MALEATE
     Indication: Eye pruritus
     Dosage: PATIENT USE ONLY AS NEEDED
     Route: 047
  2. ROSUVASTATIN [Concomitant]
     Active Substance: ROSUVASTATIN
     Indication: Blood cholesterol
     Dosage: EVERY DAY AT NIGHT, STARTED MANY YEARS AGO
     Route: 065
  3. DULOXETINE [Concomitant]
     Active Substance: DULOXETINE
     Indication: Depression
     Dosage: START DATE: (MANY YEARS AGO) DULOXETINE DELAYED RELEASE
     Route: 065
  4. BUPROPION [Concomitant]
     Active Substance: BUPROPION
     Indication: Depression
     Dosage: START DATE: (MANY YEARS AGO) BUPROPION EXTENDED RELEASE
     Route: 065
  5. PROLIA [Concomitant]
     Active Substance: DENOSUMAB
     Indication: Osteoporosis
     Dosage: FREQUENCY: EVERY 6MONTHS, START DATE: 5YEARS AGO
     Route: 065

REACTIONS (6)
  - Instillation site irritation [Recovered/Resolved]
  - Eye discharge [Recovered/Resolved]
  - Madarosis [Recovered/Resolved]
  - Product closure removal difficult [Unknown]
  - Wrong dose [Unknown]
  - Product delivery mechanism issue [Unknown]
